FAERS Safety Report 5441342-0 (Version None)
Quarter: 2007Q3

REPORT INFORMATION
  Report Type: 
  Country: None (occurrence: None)
  Receive Date: 20070903
  Receipt Date: 20070827
  Transmission Date: 20080115
  Serious: Yes (Other)
  Sender: FDA-Public Use
  Company Number: PHEH2007US11759

PATIENT
  Age: 62 Year
  Sex: Male

DRUGS (2)
  1. TRILEPTAL [Suspect]
     Indication: PARTIAL SEIZURES
     Route: 048
  2. TRILEPTAL [Suspect]
     Dosage: 900 MG, BID
     Route: 048

REACTIONS (2)
  - EYE DISORDER [None]
  - VISUAL FIELD DEFECT [None]
